FAERS Safety Report 15595886 (Version 1)
Quarter: 2018Q4

REPORT INFORMATION
  Report Type: Report from Study
  Country: US (occurrence: US)
  Receive Date: 20181107
  Receipt Date: 20181107
  Transmission Date: 20190205
  Serious: Yes (Other)
  Sender: FDA-Public Use
  Company Number: US-AMGEN-USASL2018153894

PATIENT
  Age: 61 Year
  Sex: Male

DRUGS (1)
  1. REPATHA [Suspect]
     Active Substance: EVOLOCUMAB
     Indication: LOW DENSITY LIPOPROTEIN INCREASED
     Dosage: 140 MG, Q2WK
     Route: 065

REACTIONS (7)
  - Hyperventilation [Unknown]
  - Pharyngeal hypoaesthesia [Unknown]
  - Dysphonia [Unknown]
  - Hypoaesthesia [Unknown]
  - Swelling face [Unknown]
  - Dyspnoea [Unknown]
  - Facial pain [Unknown]
